FAERS Safety Report 21055168 (Version 1)
Quarter: 2022Q3

REPORT INFORMATION
  Report Type: Other
  Country: GB (occurrence: GB)
  Receive Date: 20220707
  Receipt Date: 20220707
  Transmission Date: 20221027
  Serious: Yes (Other)
  Sender: FDA-Public Use
  Company Number: None

PATIENT
  Age: 71 Year
  Sex: Female

DRUGS (8)
  1. DOXYCYCLINE [Suspect]
     Active Substance: DOXYCYCLINE
     Indication: Product used for unknown indication
     Dosage: CAPSULES 100 MG EIGHT CAPSULES OVER SEVEN DAYS
     Route: 065
     Dates: start: 20220114
  2. DEXAMETHASONE [Suspect]
     Active Substance: DEXAMETHASONE
     Indication: Eczema
     Dosage: UNK, BID (DROPS 3MG/ML / 1MG/ML TWO DROPS TWICE A DAY FOR ELEVEN DAYS.AGAIN, SOME REDNESS/SORENESS/G
     Route: 065
     Dates: start: 20220214
  3. CIPROFLOXACIN [Suspect]
     Active Substance: CIPROFLOXACIN
     Indication: Eczema
     Dosage: 3 MG/ML, BID (DROPS 3MG/ML / 1MG/ML TWO DROPS TWICE A DAY FOR ELEVEN DAYS.AGAIN, SOME REDNESS/SORENE
     Route: 065
     Dates: start: 20220214
  4. BETAMETHASONE SODIUM PHOSPHATE [Suspect]
     Active Substance: BETAMETHASONE SODIUM PHOSPHATE
     Indication: Eczema
     Dosage: 0.1 W/V (0.1% W/V TWO DROPS TWO HOURLY REDUCING GRADUALLY )
     Route: 065
     Dates: start: 20210817
  5. BETAMETHASONE SODIUM PHOSPHATE [Suspect]
     Active Substance: BETAMETHASONE SODIUM PHOSPHATE
     Dosage: 0.1 W/V, (0.1% W/V TWO TO THREE DROPS EVERY TWO TO THREE HOURS, REDUCING GRADUALLY FOR A WEEK)
     Route: 065
     Dates: start: 20211004
  6. BETAMETHASONE SODIUM PHOSPHATE [Suspect]
     Active Substance: BETAMETHASONE SODIUM PHOSPHATE
     Dosage: 0.1 W/V (0.1% W/V TWO TO THREE DROPS EVERY TWO TO THREE HOURS, REDUCING GRADUALLY FOR A WEEK)
     Route: 065
     Dates: start: 20211118
  7. BETAMETHASONE SODIUM PHOSPHATE [Suspect]
     Active Substance: BETAMETHASONE SODIUM PHOSPHATE
     Dosage: 0.1 W/V (.1% W/V TWO TO THREE DROPS IN THREE OF FOUR TIMES A DAY)
     Route: 065
     Dates: start: 20220110
  8. AVEENO [Concomitant]
     Active Substance: DIMETHICONE\HOMOSALATE\OCTINOXATE\OCTISALATE\TITANIUM DIOXIDE
     Indication: Eczema
     Dosage: UNK
     Route: 065
     Dates: start: 202202

REACTIONS (5)
  - Eye pain [Recovered/Resolved]
  - Ocular hyperaemia [Recovered/Resolved]
  - Foreign body sensation in eyes [Recovered/Resolved]
  - Eye disorder [Recovered/Resolved]
  - Hypersensitivity [Recovered/Resolved]
